FAERS Safety Report 19892687 (Version 1)
Quarter: 2021Q3

REPORT INFORMATION
  Report Type: Spontaneous
  Country: DE (occurrence: DE)
  Receive Date: 20210929
  Receipt Date: 20210929
  Transmission Date: 20211014
  Serious: Yes (Other)
  Sender: FDA-Public Use
  Company Number: DE-SUN PHARMACEUTICAL INDUSTRIES LTD-2021RR-312803

PATIENT
  Age: 61 Year
  Sex: Male

DRUGS (1)
  1. ESOMEPRAZOL BASICS [ESOMEPRAZOLE] [Suspect]
     Active Substance: ESOMEPRAZOLE
     Indication: PRODUCT USED FOR UNKNOWN INDICATION
     Dosage: 1 TABLET  IN THE MORNING AND 1 TABLET IN THE EVENING
     Route: 065

REACTIONS (2)
  - Pustule [Unknown]
  - Haemorrhage [Unknown]
